FAERS Safety Report 24923095 (Version 2)
Quarter: 2025Q1

REPORT INFORMATION
  Report Type: Report from Study
  Country: MX (occurrence: MX)
  Receive Date: 20250204
  Receipt Date: 20250214
  Transmission Date: 20250409
  Serious: Yes (Other)
  Sender: UNITED THERAPEUTICS
  Company Number: MX-UNITED THERAPEUTICS-UNT-2025-003744

PATIENT
  Age: 72 Year

DRUGS (2)
  1. TREPROSTINIL SODIUM [Suspect]
     Active Substance: TREPROSTINIL SODIUM
     Indication: Pulmonary arterial hypertension
  2. TREPROSTINIL SODIUM [Suspect]
     Active Substance: TREPROSTINIL SODIUM

REACTIONS (8)
  - Catheter site discomfort [Recovering/Resolving]
  - Catheter site swelling [Recovering/Resolving]
  - Catheter site pain [Recovering/Resolving]
  - Catheter site related reaction [Recovering/Resolving]
  - Catheter site warmth [Recovering/Resolving]
  - Device dislocation [Recovered/Resolved]
  - Catheter site induration [Recovering/Resolving]
  - Catheter site erythema [Recovering/Resolving]
